FAERS Safety Report 8717575 (Version 2)
Quarter: 2012Q4

REPORT INFORMATION
  Report Type: 
  Country: US (occurrence: US)
  Receive Date: 20120810
  Receipt Date: 20120920
  Transmission Date: 20130627
  Serious: Yes (Other)
  Sender: FDA-Public Use
  Company Number: US-ELI_LILLY_AND_COMPANY-US201208000535

PATIENT
  Age: 61 Year
  Sex: Male

DRUGS (2)
  1. FORTEO [Suspect]
     Indication: SPINAL COMPRESSION FRACTURE
     Dosage: 20 ug, qd
     Route: 058
     Dates: start: 20110706, end: 201205
  2. PREDNISONE [Concomitant]
     Dosage: UNK

REACTIONS (1)
  - Small cell lung cancer [Recovered/Resolved]
